FAERS Safety Report 8533915-3 (Version None)
Quarter: 2012Q3

REPORT INFORMATION
  Report Type: 
  Country: None (occurrence: None)
  Receive Date: 20120703
  Receipt Date: 20120625
  Transmission Date: 20120928
  Serious: Yes (Hospitalization)
  Sender: FDA-Public Use
  Company Number: 2012032468

PATIENT
  Age: 49 Year
  Sex: Female
  Weight: 53.5244 kg

DRUGS (18)
  1. ZIPRASIDONE HYDROCHLORIDE (GEODON) [Concomitant]
  2. PAMELOR [Concomitant]
  3. ACIDOPHILUS (LACTOBACILLUS ACIDOPHILUS) [Concomitant]
  4. BENTYL [Concomitant]
  5. HIZENTRA [Suspect]
     Indication: IMMUNODEFICIENCY COMMON VARIABLE
     Dosage: SEE IMAGE
     Route: 058
     Dates: start: 20120524, end: 20120524
  6. HIZENTRA [Suspect]
     Indication: IMMUNODEFICIENCY COMMON VARIABLE
     Dosage: SEE IMAGE
     Route: 058
     Dates: start: 20120619, end: 20120619
  7. DEMEROL [Concomitant]
  8. BENADRYL [Suspect]
     Dosage: (EVERY 4-6 HOURS X 24 HOURS)
  9. LIDOCAINE/PRILOCAINE (EMLA /00675501/) [Concomitant]
  10. ROBAXIN [Concomitant]
  11. VITAMIN D [Concomitant]
  12. PRILOSEC [Concomitant]
  13. MUCINEX ER (GUAIFENESIN) [Concomitant]
  14. DIPHENHYDRAMINE HCL [Concomitant]
  15. ALBUTEROL [Concomitant]
  16. ATIVAN [Concomitant]
  17. PROAIR HFA (SALBUTAMOL SULFATE) [Concomitant]
  18. EPIPEN [Concomitant]

REACTIONS (7)
  - INFUSION SITE SWELLING [None]
  - SOMNOLENCE [None]
  - INFUSION SITE PRURITUS [None]
  - PYREXIA [None]
  - INFUSION SITE ERYTHEMA [None]
  - THROAT IRRITATION [None]
  - PRURITUS [None]
